FAERS Safety Report 14032432 (Version 2)
Quarter: 2017Q4

REPORT INFORMATION
  Report Type: Spontaneous
  Country: FR (occurrence: FR)
  Receive Date: 20171002
  Receipt Date: 20171017
  Transmission Date: 20180321
  Serious: Yes (Hospitalization, Other)
  Sender: FDA-Public Use
  Company Number: FR-PFIZER INC-2017416224

PATIENT
  Age: 77 Year
  Sex: Male

DRUGS (10)
  1. FUROSEMIDE. [Interacting]
     Active Substance: FUROSEMIDE
     Indication: HYPERTENSION
     Dosage: 40 MG, 2X/DAY
     Route: 048
  2. ZYLORIC [Concomitant]
     Active Substance: ALLOPURINOL
     Indication: HYPERURICAEMIA
     Dosage: 100 MG, 1X/DAY
     Route: 048
     Dates: end: 20120327
  3. DIAMICRON [Concomitant]
     Active Substance: GLICLAZIDE
     Indication: DIABETES MELLITUS
     Dosage: 60 MG, 1X/DAY
     Route: 048
     Dates: end: 20120627
  4. OXEOL [Concomitant]
     Active Substance: BAMBUTEROL HYDROCHLORIDE
  5. QUINAPRIL. [Suspect]
     Active Substance: QUINAPRIL
     Indication: HYPERTENSION
     Dosage: 20 MG, 1X/DAY
     Route: 048
     Dates: end: 20120627
  6. NAFTIDROFURYL [Interacting]
     Active Substance: NAFRONYL
     Indication: ARTERITIS
     Dosage: 200 MG, 2X/DAY
     Route: 048
     Dates: end: 20120703
  7. LOGIMAX [Concomitant]
     Active Substance: FELODIPINE\METOPROLOL SUCCINATE
     Dosage: UNK
     Dates: end: 201206
  8. CEBUTID [Concomitant]
     Active Substance: FLURBIPROFEN
     Indication: RHEUMATIC DISORDER
     Dosage: 200 MG, 1X/DAY
     Route: 048
     Dates: end: 20120627
  9. KALEORID [Concomitant]
     Active Substance: POTASSIUM CHLORIDE
  10. EUPRESSYL /00631801/ [Interacting]
     Active Substance: URAPIDIL
     Indication: HYPERTENSION
     Dosage: 60 MG, 2X/DAY
     Route: 048
     Dates: end: 20120627

REACTIONS (6)
  - Orthostatic hypotension [Recovered/Resolved]
  - Drug interaction [Recovered/Resolved]
  - Malaise [Recovered/Resolved]
  - Atrial fibrillation [Unknown]
  - Hypotension [Recovered/Resolved]
  - Tachycardia [Unknown]

NARRATIVE: CASE EVENT DATE: 201204
